FAERS Safety Report 7913095-5 (Version None)
Quarter: 2011Q4

REPORT INFORMATION
  Report Type: 
  Country: None (occurrence: None)
  Receive Date: 20111114
  Receipt Date: 20111101
  Transmission Date: 20120403
  Serious: Yes (Hospitalization)
  Sender: FDA-Public Use
  Company Number: US-SANOFI-AVENTIS-2011SA071855

PATIENT
  Age: 7 Year
  Sex: Male

DRUGS (8)
  1. ETHAMBUTOL HYDROCHLORIDE [Suspect]
     Indication: TUBERCULOSIS
     Route: 065
  2. RIFAMPICIN [Suspect]
     Indication: TUBERCULOSIS
     Route: 065
  3. CEFTRIAXONE [Concomitant]
     Indication: TUBERCULOSIS
  4. FLUCONAZOLE [Concomitant]
     Indication: TUBERCULOSIS
  5. PYRAZINAMIDE [Suspect]
     Indication: TUBERCULOSIS
     Route: 065
  6. ISONIAZID [Suspect]
     Indication: TUBERCULOSIS
     Route: 065
  7. PYRIDOXINE HCL [Concomitant]
     Indication: TUBERCULOSIS
  8. ACETAMINOPHEN [Concomitant]

REACTIONS (10)
  - ALANINE AMINOTRANSFERASE INCREASED [None]
  - ASPARTATE AMINOTRANSFERASE INCREASED [None]
  - GAMMA-GLUTAMYLTRANSFERASE INCREASED [None]
  - ACUTE HEPATIC FAILURE [None]
  - ABDOMINAL PAIN [None]
  - CACHEXIA [None]
  - HEPATOTOXICITY [None]
  - AMMONIA INCREASED [None]
  - JAUNDICE [None]
  - INTERNATIONAL NORMALISED RATIO INCREASED [None]
